FAERS Safety Report 6828546-7 (Version None)
Quarter: 2010Q3

REPORT INFORMATION
  Report Type: 
  Country: None (occurrence: None)
  Receive Date: 20100709
  Receipt Date: 20070213
  Transmission Date: 20110219
  Serious: No
  Sender: FDA-Public Use
  Company Number: US-PFIZER INC-2007013190

PATIENT
  Sex: Female
  Weight: 61.23 kg

DRUGS (5)
  1. CHANTIX [Suspect]
     Indication: SMOKING CESSATION THERAPY
     Dates: start: 20070127
  2. OMEPRAZOLE [Concomitant]
  3. TYLENOL W/ CODEINE NO. 3 [Concomitant]
     Indication: PAIN
  4. TYLENOL W/ CODEINE NO. 3 [Concomitant]
     Indication: HEADACHE
  5. SUDAFED 12 HOUR [Concomitant]

REACTIONS (5)
  - ABNORMAL DREAMS [None]
  - ARTHRALGIA [None]
  - INITIAL INSOMNIA [None]
  - MIDDLE INSOMNIA [None]
  - MUSCLE SPASMS [None]
